FAERS Safety Report 7657606-6 (Version None)
Quarter: 2011Q3

REPORT INFORMATION
  Report Type: 
  Country: None (occurrence: None)
  Receive Date: 20110804
  Receipt Date: 20110729
  Transmission Date: 20111222
  Serious: Yes (Hospitalization)
  Sender: FDA-Public Use
  Company Number: DE-AMGEN-DEUSP2011038898

PATIENT
  Age: 64 Year
  Sex: Female
  Weight: 67 kg

DRUGS (9)
  1. GEMTUZUMAB OZOGAMICIN [Suspect]
     Indication: ACUTE MYELOID LEUKAEMIA
     Dosage: 5.5 MG, QD
     Dates: start: 20110612, end: 20110612
  2. SIMVASTATIN [Concomitant]
     Dosage: UNK
     Dates: start: 20000101
  3. CYTARABINE [Suspect]
     Indication: ACUTE MYELOID LEUKAEMIA
     Dosage: 3660 MG, QD
     Dates: start: 20110612, end: 20110614
  4. ASPIRIN [Concomitant]
     Dosage: UNK
     Dates: start: 20110101
  5. TRETINOIN [Suspect]
     Indication: ACUTE MYELOID LEUKAEMIA
     Dosage: 30 MG, QD
     Dates: start: 20110615
  6. NEULASTA [Suspect]
     Indication: CHEMOTHERAPY
  7. ENALAPRIL MALEATE [Concomitant]
     Dosage: UNK
     Dates: start: 20000101
  8. TAMSULOSIN HCL [Concomitant]
     Dosage: UNK
     Dates: start: 20000101
  9. BISOPROLOL FUMARATE [Concomitant]
     Dosage: UNK
     Dates: start: 20000101

REACTIONS (1)
  - ANAL INFECTION [None]
